FAERS Safety Report 11371306 (Version 1)
Quarter: 2015Q3

REPORT INFORMATION
  Report Type: Report from Study
  Country: US (occurrence: US)
  Receive Date: 20150812
  Receipt Date: 20150812
  Transmission Date: 20151125
  Serious: Yes (Other)
  Sender: FDA-Public Use
  Company Number: PHEH2015US015211

PATIENT
  Sex: Male

DRUGS (1)
  1. FARYDAK [Suspect]
     Active Substance: PANOBINOSTAT
     Indication: PLASMA CELL MYELOMA
     Dosage: 15 MG, M-W-F
     Route: 048
     Dates: start: 20150506

REACTIONS (3)
  - Dysphagia [Recovering/Resolving]
  - Diarrhoea [Recovering/Resolving]
  - Pharyngitis [Recovering/Resolving]
